FAERS Safety Report 8201369-2 (Version None)
Quarter: 2012Q1

REPORT INFORMATION
  Report Type: 
  Country: None (occurrence: None)
  Receive Date: 20120312
  Receipt Date: 20120309
  Transmission Date: 20120608
  Serious: Yes (Hospitalization)
  Sender: FDA-Public Use
  Company Number: JP-B.I. PHARMACEUTICALS,INC./RIDGEFIELD-2012-BP-04457NB

PATIENT
  Sex: Male

DRUGS (4)
  1. PLAVIX [Suspect]
     Dosage: 50 MG
     Route: 048
  2. PRADAXA [Suspect]
     Dosage: 220 MG
     Route: 048
  3. PLETAL [Suspect]
     Route: 048
  4. LIPITOR [Concomitant]
     Dosage: 5 MG
     Route: 048

REACTIONS (1)
  - CEREBRAL INFARCTION [None]
